FAERS Safety Report 7654551-7 (Version None)
Quarter: 2011Q3

REPORT INFORMATION
  Report Type: 
  Country: None (occurrence: None)
  Receive Date: 20110803
  Receipt Date: 20110725
  Transmission Date: 20111222
  Serious: Yes (Life-Threatening, Hospitalization)
  Sender: FDA-Public Use
  Company Number: US-MERCK-1107USA03229

PATIENT
  Age: 28 Year
  Sex: Male

DRUGS (2)
  1. ISENTRESS [Suspect]
     Indication: HIV INFECTION
     Route: 048
     Dates: start: 20110101
  2. SEROQUEL [Concomitant]
     Route: 065

REACTIONS (4)
  - SUICIDAL IDEATION [None]
  - TREATMENT NONCOMPLIANCE [None]
  - SOMNOLENCE [None]
  - SUICIDE ATTEMPT [None]
